FAERS Safety Report 17672911 (Version 2)
Quarter: 2020Q2

REPORT INFORMATION
  Report Type: Report from Study
  Country: US (occurrence: US)
  Receive Date: 20200415
  Receipt Date: 20200415
  Transmission Date: 20200713
  Serious: Yes (Other)
  Sender: FDA-Public Use
  Company Number: US-009507513-2004USA003799

PATIENT
  Sex: Female

DRUGS (4)
  1. CELEBREX [Concomitant]
     Active Substance: CELECOXIB
  2. NASONEX [Suspect]
     Active Substance: MOMETASONE FUROATE
     Dosage: EVERY 2-3 DAYS
     Route: 055
  3. CLARITIN [Concomitant]
     Active Substance: LORATADINE
  4. NASONEX [Suspect]
     Active Substance: MOMETASONE FUROATE
     Indication: DYSPNOEA
     Dosage: 2 SQUIRTS IN EACH NOSTRIL EVERY DAY
     Route: 055
     Dates: start: 2005

REACTIONS (6)
  - Inappropriate schedule of product administration [Unknown]
  - Drug ineffective [Not Recovered/Not Resolved]
  - Choking [Not Recovered/Not Resolved]
  - Tongue biting [Not Recovered/Not Resolved]
  - Mouth breathing [Not Recovered/Not Resolved]
  - Insomnia [Not Recovered/Not Resolved]

NARRATIVE: CASE EVENT DATE: 20200309
